FAERS Safety Report 9916422 (Version 4)
Quarter: 2014Q2

REPORT INFORMATION
  Report Type: Report from Study
  Country: CA (occurrence: CA)
  Receive Date: 20140221
  Receipt Date: 20140620
  Transmission Date: 20141212
  Serious: No
  Sender: FDA-Public Use
  Company Number: CA-JNJFOC-20140110336

PATIENT
  Age: 60 Year
  Sex: Female

DRUGS (1)
  1. STELARA [Suspect]
     Indication: PSORIASIS
     Route: 058
     Dates: start: 20100505, end: 20130915

REACTIONS (3)
  - Arthritis [Unknown]
  - Notalgia paraesthetica [Unknown]
  - Cutaneous lupus erythematosus [Unknown]
